FAERS Safety Report 4831666-X (Version None)
Quarter: 2005Q4

REPORT INFORMATION
  Report Type: 
  Country: None (occurrence: None)
  Receive Date: 20051116
  Receipt Date: 20051109
  Transmission Date: 20060501
  Serious: Yes (Death)
  Sender: FDA-Public Use
  Company Number: 200511924BWH

PATIENT
  Age: 79 Year
  Sex: Male
  Weight: 58.1 kg

DRUGS (15)
  1. TRASYLOL [Suspect]
     Indication: CORONARY ARTERY SURGERY
     Dosage: 2000000 KIU, ONCE, INTRAVENOUS
     Route: 042
     Dates: start: 20050826
  2. TRASYLOL [Suspect]
     Indication: VENTRICULAR SEPTAL DEFECT
     Dosage: 2000000 KIU, ONCE, INTRAVENOUS
     Route: 042
     Dates: start: 20050826
  3. HEPARIN [Concomitant]
  4. PLASMA-LYTE 56 AND DEXTROSE 5% IN PLASTIC CONTAINER [Concomitant]
  5. MANNITOL [Concomitant]
  6. ALBUMIN HUMAN   BERNA [Concomitant]
  7. PLEGISOL [Concomitant]
  8. NORMOSOL R [Concomitant]
  9. DOPAMINE [Concomitant]
  10. NAHCO3 [Concomitant]
  11. NEOSYNEPHRINE [Concomitant]
  12. MGSO [Concomitant]
  13. PROTAMINE [Concomitant]
  14. PLAVIX [Concomitant]
  15. ASPIRIN [Concomitant]

REACTIONS (7)
  - AORTIC VALVE INCOMPETENCE [None]
  - CEREBRAL INFARCTION [None]
  - CEREBROVASCULAR ACCIDENT [None]
  - DISCOMFORT [None]
  - LOSS OF CONSCIOUSNESS [None]
  - POST PROCEDURAL COMPLICATION [None]
  - POSTURING [None]
